FAERS Safety Report 7406806-9 (Version None)
Quarter: 2011Q2

REPORT INFORMATION
  Report Type: 
  Country: None (occurrence: None)
  Receive Date: 20110406
  Receipt Date: 20110406
  Transmission Date: 20111010
  Serious: Yes (Hospitalization)
  Sender: FDA-Public Use
  Company Number: None

PATIENT
  Sex: Female
  Weight: 69.3 kg

DRUGS (2)
  1. CARBOPLATIN [Suspect]
     Dosage: 344 MG
  2. PACLITAXEL [Suspect]
     Dosage: 297 MG

REACTIONS (7)
  - ANAEMIA [None]
  - SYNCOPE [None]
  - DECREASED APPETITE [None]
  - FEBRILE NEUTROPENIA [None]
  - DEHYDRATION [None]
  - FATIGUE [None]
  - PANCYTOPENIA [None]
